FAERS Safety Report 12880442 (Version 2)
Quarter: 2016Q4

REPORT INFORMATION
  Report Type: Spontaneous
  Country: US (occurrence: US)
  Receive Date: 20161025
  Receipt Date: 20161102
  Transmission Date: 20170207
  Serious: Yes (Hospitalization, Disabling)
  Sender: FDA-Public Use
  Company Number: US-BAUSCH-BL-2016-019644

PATIENT
  Age: 57 Year
  Sex: Female

DRUGS (1)
  1. ATIVAN [Suspect]
     Active Substance: LORAZEPAM
     Indication: MYALGIA
     Route: 048

REACTIONS (6)
  - Coma [Recovering/Resolving]
  - Muscle tightness [Unknown]
  - Drug abuse [Unknown]
  - Seizure [Unknown]
  - Drug interaction [Unknown]
  - Malaise [Unknown]

NARRATIVE: CASE EVENT DATE: 20160704
